FAERS Safety Report 25983230 (Version 1)
Quarter: 2025Q4

REPORT INFORMATION
  Report Type: Spontaneous
  Country: CA (occurrence: None)
  Receive Date: 20251031
  Receipt Date: 20251031
  Transmission Date: 20260118
  Serious: Yes (Other)
  Sender: ORGANON
  Company Number: CA-ORGANON-O2506CAN000056

PATIENT
  Age: 43 Year
  Sex: Female

DRUGS (1)
  1. NUVARING [Suspect]
     Active Substance: ETHINYL ESTRADIOL\ETONOGESTREL
     Indication: Product used for unknown indication
     Dosage: 1 RING (1.0 DOSAGE FORM) (SLOW-RELEASE)

REACTIONS (3)
  - Vaginal haemorrhage [Unknown]
  - Heavy menstrual bleeding [Unknown]
  - Product quality issue [Unknown]

NARRATIVE: CASE EVENT DATE: 20250508
